FAERS Safety Report 9732636 (Version 5)
Quarter: 2015Q2

REPORT INFORMATION
  Report Type: Report from Study
  Country: US (occurrence: US)
  Receive Date: 20131205
  Receipt Date: 20150602
  Transmission Date: 20150821
  Serious: Yes (Other)
  Sender: FDA-Public Use
  Company Number: US-SA-2013SA123133

PATIENT
  Age: 67 Year
  Sex: Female

DRUGS (7)
  1. OXYBUTYNIN [Concomitant]
     Active Substance: OXYBUTYNIN
     Indication: INCONTINENCE
  2. AUBAGIO [Suspect]
     Active Substance: TERIFLUNOMIDE
     Indication: MULTIPLE SCLEROSIS
     Route: 048
     Dates: start: 20131002, end: 20131222
  3. LEVOTHYROXINE [Concomitant]
     Active Substance: LEVOTHYROXINE
     Indication: THYROID DISORDER
  4. AMANTADINE [Concomitant]
     Active Substance: AMANTADINE
  5. BACLOFEN. [Concomitant]
     Active Substance: BACLOFEN
     Indication: RESTLESS LEGS SYNDROME
  6. AUBAGIO [Suspect]
     Active Substance: TERIFLUNOMIDE
     Indication: MULTIPLE SCLEROSIS
     Route: 048
     Dates: end: 20140201
  7. AUBAGIO [Suspect]
     Active Substance: TERIFLUNOMIDE
     Indication: MULTIPLE SCLEROSIS
     Route: 048
     Dates: start: 20130102

REACTIONS (7)
  - Diarrhoea [Recovered/Resolved]
  - Malaise [Unknown]
  - Chest pain [Unknown]
  - Kidney infection [Unknown]
  - Drug dose omission [Unknown]
  - Influenza [Recovering/Resolving]
  - Drug ineffective [Unknown]

NARRATIVE: CASE EVENT DATE: 20131029
